FAERS Safety Report 12970277 (Version 4)
Quarter: 2016Q4

REPORT INFORMATION
  Report Type: Report from Study
  Country: CN (occurrence: CN)
  Receive Date: 20161123
  Receipt Date: 20161227
  Transmission Date: 20170207
  Serious: Yes (Other)
  Sender: FDA-Public Use
  Company Number: PHHY2015CN157367

PATIENT
  Age: 37 Year
  Sex: Male

DRUGS (32)
  1. PREDNISONE. [Suspect]
     Active Substance: PREDNISONE
     Dosage: 10 MG, QD
     Route: 065
     Dates: start: 20151120, end: 20151127
  2. AMBROXOL HYDROCHLORIDE [Concomitant]
     Active Substance: AMBROXOL HYDROCHLORIDE
     Indication: PRODUCTIVE COUGH
     Dosage: 30 MG, BID
     Route: 042
     Dates: start: 20151103, end: 20151115
  3. PIPERAZINE FERULAT [Concomitant]
     Dosage: 100 MG, TID
     Route: 048
     Dates: start: 20151228, end: 20151231
  4. MYFORTIC [Suspect]
     Active Substance: MYCOPHENOLATE SODIUM
     Indication: IMMUNOSUPPRESSANT DRUG THERAPY
     Dosage: 720 MG, QD
     Route: 065
     Dates: start: 20160115, end: 20160207
  5. CICLOSPORIN [Suspect]
     Active Substance: CYCLOSPORINE
     Dosage: 350 MG, QD
     Route: 065
     Dates: start: 20151120
  6. MYCOPHENOLATE MOFETIL. [Suspect]
     Active Substance: MYCOPHENOLATE MOFETIL
     Indication: IMMUNOSUPPRESSANT DRUG THERAPY
     Dosage: 1000 MG, QD
     Route: 065
     Dates: start: 20160207
  7. GANCICLOVIR. [Concomitant]
     Active Substance: GANCICLOVIR
     Indication: SUPPLEMENTATION THERAPY
     Dosage: 250 MG, QD
     Route: 042
     Dates: start: 20151120, end: 20151127
  8. GANCICLOVIR. [Concomitant]
     Active Substance: GANCICLOVIR
     Indication: CYTOMEGALOVIRUS INFECTION
  9. VITAMIN B COMPLEX/B12 [Concomitant]
     Indication: NUTRITIONAL SUPPLEMENTATION
     Dosage: 400 IU, QD
     Route: 042
     Dates: start: 20151103, end: 20151115
  10. CICLOSPORIN [Suspect]
     Active Substance: CYCLOSPORINE
     Indication: IMMUNOSUPPRESSANT DRUG THERAPY
     Dosage: 400 MG, QD
     Route: 065
     Dates: start: 20151104, end: 20151120
  11. METHYLPREDNISOLONE. [Suspect]
     Active Substance: METHYLPREDNISOLONE
     Indication: IMMUNOSUPPRESSANT DRUG THERAPY
     Dosage: 500 MG, QD
     Route: 065
     Dates: start: 20151104, end: 20151106
  12. PREDNISONE. [Suspect]
     Active Substance: PREDNISONE
     Indication: IMMUNOSUPPRESSANT DRUG THERAPY
     Dosage: 20 MG, QD
     Route: 065
     Dates: start: 20151106, end: 20151112
  13. PIPERACILLIN//PIPERACILLIN SODIUM [Concomitant]
     Indication: INFECTION PROPHYLAXIS
  14. PAPAVERINE HYDROCHLORIDE. [Concomitant]
     Active Substance: PAPAVERINE HYDROCHLORIDE
     Indication: VASODILATION PROCEDURE
     Dosage: 30 MG, QD
     Route: 042
     Dates: start: 20151103, end: 20151103
  15. HEPARIN SODIUM CHLORIDE [Concomitant]
     Dosage: 5000 IU, QD
     Route: 042
     Dates: start: 20151223, end: 20151229
  16. RECOMBINANT HUMAN ERYTHROPOIETIN [Concomitant]
     Active Substance: ERYTHROPOIETIN
     Indication: ANAEMIA
     Dosage: 10000 IU, QW
     Route: 042
     Dates: start: 20151113, end: 20151221
  17. PREDNISONE. [Suspect]
     Active Substance: PREDNISONE
     Dosage: 15 MG, QD
     Route: 065
     Dates: start: 20151112, end: 20151120
  18. PREDNISONE. [Suspect]
     Active Substance: PREDNISONE
     Dosage: 5 MG, QD
     Route: 065
     Dates: start: 20151128
  19. BERAPROST SODIUM [Concomitant]
     Active Substance: BERAPROST SODIUM
     Indication: CARDIOVASCULAR INSUFFICIENCY
     Dosage: 40 UG, TID
     Route: 048
     Dates: start: 20151223, end: 20151231
  20. NIFEDIPINE. [Concomitant]
     Active Substance: NIFEDIPINE
     Indication: BLOOD PRESSURE ABNORMAL
     Dosage: 5 MG, QN
     Route: 048
     Dates: start: 20151107, end: 20151110
  21. HEPARIN SODIUM CHLORIDE [Concomitant]
     Indication: PRODUCT USED FOR UNKNOWN INDICATION
     Dosage: 5000 IU, QD
     Route: 042
     Dates: start: 20151103, end: 20151103
  22. SODIUM BICARBONATE. [Concomitant]
     Active Substance: SODIUM BICARBONATE
     Indication: ACID BASE BALANCE ABNORMAL
     Dosage: 250 ML, QD
     Route: 042
     Dates: start: 20151111, end: 20151111
  23. CIPROFLOXACIN HYDROCHLORIDE. [Concomitant]
     Active Substance: CIPROFLOXACIN HYDROCHLORIDE
     Indication: INFECTION PROPHYLAXIS
     Dosage: 0.2 G, TID
     Route: 048
     Dates: start: 20151228, end: 20151231
  24. HEPARIN SODIUM CHLORIDE [Concomitant]
     Dosage: 5000 IU, QD
     Route: 042
     Dates: start: 20151207, end: 20151213
  25. PIPERAZINE FERULAT [Concomitant]
     Indication: CARDIOVASCULAR INSUFFICIENCY
     Dosage: 100 MG, TID
     Route: 048
     Dates: start: 20151123, end: 20151214
  26. VALSARTAN. [Concomitant]
     Active Substance: VALSARTAN
     Indication: BLOOD PRESSURE ABNORMAL
     Dosage: 80 MG, BID
     Route: 048
     Dates: start: 20151130, end: 20151214
  27. MYFORTIC [Suspect]
     Active Substance: MYCOPHENOLATE SODIUM
     Indication: RENAL TRANSPLANT
     Dosage: 1440 MG, QD
     Route: 065
     Dates: start: 20151104, end: 20160115
  28. PANTOPRAZOLE SODIUM. [Concomitant]
     Active Substance: PANTOPRAZOLE SODIUM
     Indication: PROPHYLAXIS
     Dosage: 40 MG, QD
     Route: 042
     Dates: start: 20151104, end: 20151106
  29. PIPERACILLIN//PIPERACILLIN SODIUM [Concomitant]
     Indication: SUPPLEMENTATION THERAPY
     Dosage: 2.25 G, BID
     Route: 042
     Dates: start: 20151103, end: 20151115
  30. BASILIXIMAB [Suspect]
     Active Substance: BASILIXIMAB
     Indication: IMMUNOSUPPRESSANT DRUG THERAPY
     Dosage: 20 MG, QD
     Route: 065
     Dates: start: 20151103, end: 20151103
  31. ALPROSTADIL. [Concomitant]
     Active Substance: ALPROSTADIL
     Indication: CARDIOVASCULAR INSUFFICIENCY
     Dosage: 10 UG, BID
     Route: 042
     Dates: start: 20151103, end: 20151127
  32. AMLODIPIN BESYLATE AND BENAZEPRIL HYDROCHLORI [Concomitant]
     Active Substance: AMLODIPINE BESYLATE\BENAZEPRIL HYDROCHLORIDE
     Indication: BLOOD PRESSURE ABNORMAL
     Dosage: 12.5 MG, BID
     Route: 048
     Dates: start: 20151108, end: 20151231

REACTIONS (5)
  - Urinary tract infection [Unknown]
  - Hyperlipidaemia [Recovering/Resolving]
  - Diabetes insipidus [Recovering/Resolving]
  - Blood urea increased [Unknown]
  - Incision site pain [Recovering/Resolving]

NARRATIVE: CASE EVENT DATE: 20151109
